FAERS Safety Report 5587765-0 (Version None)
Quarter: 2007Q4

REPORT INFORMATION
  Report Type: 
  Country: None (occurrence: None)
  Receive Date: 20071228
  Receipt Date: 20071220
  Transmission Date: 20080405
  Serious: Yes (Other)
  Sender: FDA-Public Use
  Company Number: AEUSA200700221

PATIENT
  Age: 72 Year
  Sex: Male
  Weight: 61.6892 kg

DRUGS (5)
  1. GAMUNEX [Suspect]
     Indication: CHRONIC LYMPHOCYTIC LEUKAEMIA
     Dosage: 25 GM;QM;IV
     Route: 042
     Dates: start: 20070831, end: 20071130
  2. GAMUNEX [Suspect]
     Indication: CRYPTOGENIC ORGANISING PNEUMONIA
     Dosage: 25 GM;QM;IV
     Route: 042
     Dates: start: 20070831, end: 20071130
  3. GAMUNEX [Suspect]
  4. FERROUS SULFATE [Concomitant]
  5. PREDNISONE TAB [Concomitant]

REACTIONS (4)
  - CONVULSION [None]
  - FALL [None]
  - LOSS OF CONSCIOUSNESS [None]
  - URINARY INCONTINENCE [None]
